FAERS Safety Report 16470044 (Version 1)
Quarter: 2019Q2

REPORT INFORMATION
  Report Type: Spontaneous
  Country: US (occurrence: US)
  Receive Date: 20190624
  Receipt Date: 20190624
  Transmission Date: 20190711
  Serious: No
  Sender: FDA-Public Use
  Company Number: US-MYLANLABS-2019M1054002

PATIENT
  Sex: Female

DRUGS (1)
  1. LEVOTHYROXINE SODIUM TABLETS, USP [Suspect]
     Active Substance: LEVOTHYROXINE SODIUM
     Indication: THYROID DISORDER
     Dosage: 2 UNK
     Route: 065

REACTIONS (7)
  - Carpal tunnel syndrome [Unknown]
  - Weight increased [Unknown]
  - Fatigue [Unknown]
  - Depression [Unknown]
  - Swelling [Unknown]
  - Skin burning sensation [Unknown]
  - Drug ineffective [Unknown]
